FAERS Safety Report 6977694-X (Version None)
Quarter: 2010Q3

REPORT INFORMATION
  Report Type: 
  Country: None (occurrence: None)
  Receive Date: 20100913
  Receipt Date: 20100901
  Transmission Date: 20110219
  Serious: No
  Sender: FDA-Public Use
  Company Number: US-BIOGENIDEC-2010BI030676

PATIENT
  Age: 39 Year
  Sex: Female

DRUGS (1)
  1. TYSABRI [Suspect]
     Indication: MULTIPLE SCLEROSIS
     Route: 042
     Dates: start: 20080221

REACTIONS (6)
  - BALANCE DISORDER [None]
  - GAIT DISTURBANCE [None]
  - HYPOAESTHESIA [None]
  - MOTOR DYSFUNCTION [None]
  - MULTIPLE SCLEROSIS [None]
  - TREMOR [None]
